FAERS Safety Report 17973422 (Version 1)
Quarter: 2020Q3

REPORT INFORMATION
  Report Type: Spontaneous
  Country: CN (occurrence: CN)
  Receive Date: 20200702
  Receipt Date: 20200702
  Transmission Date: 20201103
  Serious: Yes (Other)
  Sender: FDA-Public Use
  Company Number: CN-ROCHE-2632784

PATIENT
  Age: 76 Year
  Sex: Male

DRUGS (23)
  1. VINDESINE [Concomitant]
     Active Substance: VINDESINE
     Indication: DIFFUSE LARGE B-CELL LYMPHOMA
     Dosage: 21/JUL/2019, 17/AUG/2019, 20/SEP/2019 AND 27/OCT/2019
     Route: 065
  2. VINDESINE [Concomitant]
     Active Substance: VINDESINE
     Route: 065
     Dates: start: 20200118
  3. CYCLOPHOSPHAMIDE. [Concomitant]
     Active Substance: CYCLOPHOSPHAMIDE
     Indication: DIFFUSE LARGE B-CELL LYMPHOMA
     Dosage: 21/JUL/2019, 17/AUG/2019, 20/SEP/2019 AND 27/OCT/2019
     Route: 065
  4. CYCLOPHOSPHAMIDE. [Concomitant]
     Active Substance: CYCLOPHOSPHAMIDE
     Dosage: 25/NOV/2019 AND 24/DEC/2019
     Route: 065
  5. DOXORUBICIN [Concomitant]
     Active Substance: DOXORUBICIN
     Route: 065
     Dates: start: 20200118
  6. PREDNISONE. [Concomitant]
     Active Substance: PREDNISONE
     Dosage: 25/NOV/2019 AND 24/DEC/2019
     Route: 065
  7. MABTHERA [Suspect]
     Active Substance: RITUXIMAB
     Route: 065
     Dates: start: 20200118
  8. CYCLOPHOSPHAMIDE. [Concomitant]
     Active Substance: CYCLOPHOSPHAMIDE
     Dosage: 28/FEB/2020, 26/MAR/2020, 17/APR/2020 AND 09/MAY/2020
     Route: 065
  9. PREDNISONE. [Concomitant]
     Active Substance: PREDNISONE
     Dosage: 28/FEB/2020, 26/MAR/2020, 17/APR/2020 AND 09/MAY/2020
     Route: 065
  10. LENALIDOMIDE [Concomitant]
     Active Substance: LENALIDOMIDE
     Indication: DIFFUSE LARGE B-CELL LYMPHOMA
     Dosage: 21/JUL/2019, 17/AUG/2019, 20/SEP/2019 AND 27/OCT/2019, ONCE EVERY OTHER DAY
     Route: 065
  11. LENALIDOMIDE [Concomitant]
     Active Substance: LENALIDOMIDE
     Dosage: 25/NOV/2019 AND 24/DEC/2019, ONCE EVERY OTHER DAY, TOTAL 5 CAPSULES
     Route: 065
  12. LENALIDOMIDE [Concomitant]
     Active Substance: LENALIDOMIDE
     Dosage: DF=CAPSULE
     Route: 048
     Dates: start: 20200118
  13. DOXORUBICIN [Concomitant]
     Active Substance: DOXORUBICIN
     Indication: DIFFUSE LARGE B-CELL LYMPHOMA
     Dosage: 21/JUL/2019, 17/AUG/2019, 20/SEP/2019 AND 27/OCT/2019
     Route: 065
  14. VINDESINE [Concomitant]
     Active Substance: VINDESINE
     Dosage: 28/FEB/2020, 26/MAR/2020, 17/APR/2020 AND 09/MAY/2020, 96 HOURS CONTINUOUS USE
     Route: 065
  15. PREDNISONE. [Concomitant]
     Active Substance: PREDNISONE
     Indication: DIFFUSE LARGE B-CELL LYMPHOMA
     Dosage: 21/JUL/2019, 17/AUG/2019, 20/SEP/2019 AND 27/OCT/2019
     Route: 065
  16. MABTHERA [Suspect]
     Active Substance: RITUXIMAB
     Indication: DIFFUSE LARGE B-CELL LYMPHOMA
     Dosage: 21/JUL/2019, 17/AUG/2019, 20/SEP/2019 AND  27/OCT /2019
     Route: 065
  17. MABTHERA [Suspect]
     Active Substance: RITUXIMAB
     Dosage: 25/NOV/2019 AND 24/DEC/2019
     Route: 065
  18. DOXORUBICIN [Concomitant]
     Active Substance: DOXORUBICIN
     Dosage: 25/NOV/2019 AND 24/DEC/2019
     Route: 065
  19. VINDESINE [Concomitant]
     Active Substance: VINDESINE
     Dosage: 25/NOV/2019 AND 24/DEC/2019
     Route: 065
  20. CYCLOPHOSPHAMIDE. [Concomitant]
     Active Substance: CYCLOPHOSPHAMIDE
     Route: 065
     Dates: start: 20200118
  21. DOXORUBICIN [Concomitant]
     Active Substance: DOXORUBICIN
     Dosage: 28/FEB/2020, 26/MAR/2020, 17/APR/2020 AND 09/MAY/2020
     Route: 065
  22. PREDNISONE. [Concomitant]
     Active Substance: PREDNISONE
     Route: 065
     Dates: start: 20200118
  23. ETOPOSIDE. [Concomitant]
     Active Substance: ETOPOSIDE
     Indication: DIFFUSE LARGE B-CELL LYMPHOMA
     Dosage: 28/FEB/2020, 26/MAR/2020, 17/APR/2020 AND 09/MAY/2020
     Route: 065

REACTIONS (2)
  - Agranulocytosis [Unknown]
  - Myelosuppression [Unknown]
